FAERS Safety Report 4285763-0 (Version None)
Quarter: 2004Q1

REPORT INFORMATION
  Report Type: 
  Country: None (occurrence: None)
  Receive Date: 20040204
  Receipt Date: 20030122
  Transmission Date: 20041129
  Serious: Yes (Other)
  Sender: FDA-Public Use
  Company Number: 04-0004-PO

PATIENT
  Sex: Female

DRUGS (8)
  1. PONSTEL [Suspect]
     Dosage: PO
     Route: 048
  2. LIVIAL [Concomitant]
  3. MOTILIUM [Concomitant]
  4. STILLNOX [Concomitant]
  5. TRAMADOL HCL [Concomitant]
  6. EFFEXOR [Concomitant]
  7. TEMESTA [Concomitant]
  8. ACETAMINOPHEN [Concomitant]

REACTIONS (3)
  - DERMATITIS BULLOUS [None]
  - PSEUDOPORPHYRIA [None]
  - SKIN ULCER [None]
